FAERS Safety Report 26105258 (Version 1)
Quarter: 2025Q4

REPORT INFORMATION
  Report Type: Spontaneous
  Country: CA (occurrence: CA)
  Receive Date: 20251201
  Receipt Date: 20251201
  Transmission Date: 20260118
  Serious: Yes (Death)
  Sender: TEVA
  Company Number: CA-TEVA-VS-3396250

PATIENT
  Age: 70 Year
  Sex: Female

DRUGS (4)
  1. DONEPEZIL [Suspect]
     Active Substance: DONEPEZIL
     Indication: Corticobasal degeneration
     Route: 065
  2. MEMANTINE [Suspect]
     Active Substance: MEMANTINE
     Indication: Corticobasal degeneration
     Route: 065
  3. GALANTAMINE [Suspect]
     Active Substance: GALANTAMINE
     Indication: Product used for unknown indication
     Route: 065
  4. RIVASTIGMINE [Suspect]
     Active Substance: RIVASTIGMINE
     Indication: Corticobasal degeneration
     Route: 065

REACTIONS (2)
  - Condition aggravated [Fatal]
  - Drug ineffective [Fatal]
